FAERS Safety Report 7304443-8 (Version None)
Quarter: 2011Q1

REPORT INFORMATION
  Report Type: 
  Country: None (occurrence: None)
  Receive Date: 20110221
  Receipt Date: 20110210
  Transmission Date: 20110831
  Serious: Yes (Hospitalization)
  Sender: FDA-Public Use
  Company Number: US-ASTRAZENECA-2009UW13834

PATIENT
  Age: 76 Year
  Sex: Female

DRUGS (6)
  1. METROPHIL [Concomitant]
  2. LIPONTIL [Concomitant]
  3. ASPIRIN [Concomitant]
  4. CRESTOR [Suspect]
     Route: 048
     Dates: start: 20090101
  5. PAVALIN [Concomitant]
  6. LEXAPRO [Concomitant]

REACTIONS (2)
  - ANGINA PECTORIS [None]
  - ILL-DEFINED DISORDER [None]
